FAERS Safety Report 10648704 (Version 1)
Quarter: 2014Q4

REPORT INFORMATION
  Report Type: Spontaneous
  Country: US (occurrence: None)
  Receive Date: 20141205
  Receipt Date: 20141205
  Transmission Date: 20150529
  Serious: No
  Sender: FDA-Public Use
  Company Number: USA-2014102850

PATIENT
  Age: 51 Year
  Sex: Female

DRUGS (14)
  1. POMALYST [Suspect]
     Active Substance: POMALIDOMIDE
     Indication: PLASMA CELL MYELOMA
     Dosage: 21 IN 21 D
     Route: 048
     Dates: start: 20140911
  2. VICTOZA(LIRAGLUTIDE) (UNKNOWN) [Concomitant]
  3. AMPHETAMINE(AMFETAMINE) (UNKNOWN) [Concomitant]
  4. METFORMIN(METFORMIN) (UNKNOWN) [Concomitant]
  5. ACYCLOVIR(ACICLOVIR) (UNKNOWN) [Concomitant]
  6. CYCLOBENZAPRINE(CYCLOBENZAPRINE) (UNKNOWN) [Concomitant]
  7. MORPHINE(MORPHINE) (UNKNOWN) [Concomitant]
  8. HYDROMORPHONE(HYDROMORPHONE) (UNKNOWN) [Concomitant]
  9. ALPRAZOLAM(ALPRAZOLAM) (UNKNOWN) [Concomitant]
  10. DEXAMETHASONE(DEXAMETHASONE) (UNKNOWN) [Concomitant]
  11. OXYCODONE(OXYCODONE) (UNKNOWN) [Concomitant]
  12. OXYCODONE AND ACETAMINOPHEN(PARACETAMOL, OXYCODONE HYDROCHLORIDE) (UNKNOWN) [Concomitant]
  13. CLINDAMYCIN(CLINDAMYCIN) (UNKNOWN) [Concomitant]
  14. GLIMEPIRIDE(GLIMEPIRIDE) (UNKNOWN) [Concomitant]

REACTIONS (10)
  - Herpes zoster [None]
  - Heart rate irregular [None]
  - Stress [None]
  - Muscle spasms [None]
  - Neuropathy peripheral [None]
  - Fatigue [None]
  - Insomnia [None]
  - Constipation [None]
  - Pollakiuria [None]
  - Anxiety [None]
